FAERS Safety Report 6937097-0 (Version None)
Quarter: 2010Q3

REPORT INFORMATION
  Report Type: 
  Country: None (occurrence: None)
  Receive Date: 20100817
  Receipt Date: 20100728
  Transmission Date: 20110219
  Serious: Yes (Life-Threatening)
  Sender: FDA-Public Use
  Company Number: 2010094335

PATIENT
  Age: 19 Year
  Sex: Female
  Weight: 73.5 kg

DRUGS (10)
  1. CYTARABINE [Suspect]
     Indication: ACUTE MYELOID LEUKAEMIA
     Dosage: 6000 MG, ON FOUR ALTERNATE DAYS, INTRAVENOUS
     Route: 042
     Dates: start: 20100129, end: 20100205
  2. IDARUBICIN HCL [Suspect]
     Indication: ACUTE MYELOID LEUKAEMIA
     Dosage: 18 MG, 1X/DAY DAYS 1-3, INTRAVENOUS
     Route: 042
     Dates: start: 20100129, end: 20100131
  3. ETOPOSIDE [Suspect]
     Indication: ACUTE MYELOID LEUKAEMIA
     Dosage: 150 MG, 1X/DAY FOR 7 DAYS, INTRAVENOUS
     Route: 042
     Dates: start: 20100129, end: 20100204
  4. NEULASTA [Suspect]
     Indication: NEUTROPENIA
     Dosage: 6 MG, 1X/DAY, SUBCUTANEOUS
     Route: 058
     Dates: start: 20100106, end: 20100106
  5. MEROPENEM [Concomitant]
  6. CIPROFLOXACIN [Concomitant]
  7. FLUCONAZOLE [Concomitant]
  8. VANCOMYCIN [Concomitant]
  9. VORICONAZOLE [Concomitant]
  10. AMBISOME [Concomitant]

REACTIONS (3)
  - GENERAL PHYSICAL HEALTH DETERIORATION [None]
  - HYPOXIA [None]
  - RESPIRATORY TRACT INFECTION FUNGAL [None]
